FAERS Safety Report 5478993-3 (Version None)
Quarter: 2007Q4

REPORT INFORMATION
  Report Type: 
  Country: None (occurrence: None)
  Receive Date: 20071006
  Receipt Date: 20070924
  Transmission Date: 20080405
  Serious: Yes (Other)
  Sender: FDA-Public Use
  Company Number: ES-PFIZER INC-2007078935

PATIENT
  Sex: Female

DRUGS (1)
  1. VIRACEPT [Suspect]

REACTIONS (1)
  - INTRA-UTERINE DEATH [None]
